FAERS Safety Report 6747682-7 (Version None)
Quarter: 2010Q2

REPORT INFORMATION
  Report Type: 
  Country: None (occurrence: None)
  Receive Date: 20100528
  Receipt Date: 20100517
  Transmission Date: 20101027
  Serious: Yes (Hospitalization, Other)
  Sender: FDA-Public Use
  Company Number: US-ELI_LILLY_AND_COMPANY-US201005004630

PATIENT
  Sex: Female

DRUGS (3)
  1. CYMBALTA [Suspect]
     Indication: IRRITABILITY
     Dosage: 60 MG, UNK
     Dates: end: 20100510
  2. VITAMIN TAB [Concomitant]
  3. PEPCID AC [Concomitant]

REACTIONS (6)
  - GASTRIC BANDING [None]
  - HEADACHE [None]
  - IMPATIENCE [None]
  - OFF LABEL USE [None]
  - SOMNOLENCE [None]
  - WITHDRAWAL SYNDROME [None]
